FAERS Safety Report 6770807-4 (Version None)
Quarter: 2010Q2

REPORT INFORMATION
  Report Type: 
  Country: None (occurrence: None)
  Receive Date: 20100614
  Receipt Date: 20100614
  Transmission Date: 20101027
  Serious: No
  Sender: FDA-Public Use
  Company Number: None

PATIENT
  Sex: Female
  Weight: 65.8 kg

DRUGS (1)
  1. DIFLUCAN [Suspect]
     Indication: VAGINAL INFECTION
     Dosage: 150MG 1 QD ORAL
     Route: 048

REACTIONS (2)
  - DRUG INEFFECTIVE [None]
  - RASH [None]
